FAERS Safety Report 5769926-0 (Version None)
Quarter: 2008Q2

REPORT INFORMATION
  Report Type: 
  Country: None (occurrence: None)
  Receive Date: 20080613
  Receipt Date: 20080415
  Transmission Date: 20081010
  Serious: No
  Sender: FDA-Public Use
  Company Number: US-ABBOTT-08P-163-0447212-00

PATIENT
  Sex: Male
  Weight: 105.45 kg

DRUGS (2)
  1. HUMIRA [Suspect]
     Indication: RHEUMATOID ARTHRITIS
     Dosage: PEN
     Route: 058
     Dates: start: 20071001
  2. HUMIRA [Suspect]
     Dosage: PFS
     Route: 058
     Dates: start: 20070524, end: 20071001

REACTIONS (2)
  - INJECTION SITE PAIN [None]
  - PAIN [None]
